FAERS Safety Report 21947345 (Version 3)
Quarter: 2023Q1

REPORT INFORMATION
  Report Type: Report from Study
  Country: US (occurrence: US)
  Receive Date: 20230202
  Receipt Date: 20230303
  Transmission Date: 20230417
  Serious: Yes (Life-Threatening, Hospitalization)
  Sender: FDA-Public Use
  Company Number: US-REGENERON PHARMACEUTICALS, INC.-2022-156518

PATIENT
  Age: 69 Year
  Sex: Female

DRUGS (18)
  1. CEMIPLIMAB [Suspect]
     Active Substance: CEMIPLIMAB
     Indication: Ovarian cancer
     Dosage: 350 MG, DLC8A
     Route: 042
     Dates: start: 20230118, end: 20230118
  2. ROBITUSSIN AC [CODEINE PHOSPHATE;GUAIFENESIN] [Concomitant]
     Indication: COVID-19
     Dosage: 10 MG, Q4H
     Route: 048
     Dates: start: 20221210
  3. ROBITUSSIN AC [CODEINE PHOSPHATE;GUAIFENESIN] [Concomitant]
     Dosage: 200 MG, AS NECESSARY Q4H
     Route: 048
     Dates: start: 20221206, end: 20221208
  4. CEPACOL SORE THROAT [BENZOCAINE;MENTHOL] [Concomitant]
     Indication: COVID-19
     Dosage: 1 LOZENGE, TID
     Route: 048
     Dates: start: 20221205
  5. TYLENOL [Concomitant]
     Active Substance: ACETAMINOPHEN
     Indication: Back pain
     Dosage: 325-650 MG, AS NECESSARY
     Route: 048
     Dates: start: 20221206
  6. TYLENOL [Concomitant]
     Active Substance: ACETAMINOPHEN
     Indication: COVID-19
     Dosage: 650 MG, SINGLE
     Route: 048
     Dates: start: 20221228, end: 20221228
  7. TYLENOL [Concomitant]
     Active Substance: ACETAMINOPHEN
     Indication: Cytokine release syndrome
  8. SENNOSIDES A AND B [Concomitant]
     Active Substance: SENNOSIDES A AND B
     Indication: Constipation
     Dosage: 2 TABLET, AS NECESSARY
     Route: 048
     Dates: start: 20121208
  9. LISINOPRIL [Concomitant]
     Active Substance: LISINOPRIL
     Indication: Hypertension
     Dosage: 5-20 MG, QD
     Route: 048
     Dates: start: 20180215, end: 20221231
  10. MAGNESIUM OXIDE [Concomitant]
     Active Substance: MAGNESIUM OXIDE
     Indication: Supplementation therapy
     Dosage: 250 MG, QD
     Route: 048
     Dates: start: 20180507
  11. FLEXERIL [Concomitant]
     Active Substance: CYCLOBENZAPRINE HYDROCHLORIDE
     Indication: Back pain
     Dosage: 5 MG, BID
     Route: 048
     Dates: start: 20220414
  12. ADVIL [Concomitant]
     Active Substance: IBUPROFEN
     Indication: Back pain
     Dosage: 600 MG, TID
     Route: 048
     Dates: start: 20170525
  13. OXYCODONE [Concomitant]
     Active Substance: OXYCODONE
     Indication: Back pain
     Dosage: 5 MG, Q4H
     Route: 048
     Dates: start: 20221024
  14. REMDESIVIR [Concomitant]
     Active Substance: REMDESIVIR
     Indication: COVID-19
     Dosage: 200 MG, SINGLE
     Route: 042
     Dates: start: 20221208, end: 20221208
  15. REMDESIVIR [Concomitant]
     Active Substance: REMDESIVIR
     Dosage: 100 MG, TWICE
     Route: 042
     Dates: start: 20221209, end: 20221210
  16. ROMIPLOSTIM [Concomitant]
     Active Substance: ROMIPLOSTIM
     Indication: Platelet count decreased
     Dosage: 10 MCG/KG, WEEKLY
     Route: 042
     Dates: start: 20230129
  17. MOUTH KOTE [Concomitant]
     Indication: Mucosal haemorrhage
     Dosage: 3 SPRAY, AS NECESSARY
     Route: 048
     Dates: start: 20230127
  18. BIOTENE (PASTE) [Concomitant]
     Active Substance: SODIUM MONOFLUOROPHOSPHATE
     Indication: Mucosal haemorrhage
     Dosage: 30 ML, AS NECESSARY
     Route: 048
     Dates: start: 20230130

REACTIONS (5)
  - Myelodysplastic syndrome [Not Recovered/Not Resolved]
  - Cytokine release syndrome [Recovered/Resolved]
  - Abdominal pain [Not Recovered/Not Resolved]
  - Haemophagocytic lymphohistiocytosis [Not Recovered/Not Resolved]
  - Non-cardiac chest pain [Recovered/Resolved]

NARRATIVE: CASE EVENT DATE: 20221222
